FAERS Safety Report 7364580-9 (Version None)
Quarter: 2011Q1

REPORT INFORMATION
  Report Type: 
  Country: None (occurrence: None)
  Receive Date: 20110321
  Receipt Date: 20110308
  Transmission Date: 20110831
  Serious: Yes (Other)
  Sender: FDA-Public Use
  Company Number: JP-JNJFOC-20101203844

PATIENT
  Sex: Female
  Weight: 51 kg

DRUGS (11)
  1. REMICADE [Suspect]
     Indication: CROHN'S DISEASE
     Route: 042
  2. REMICADE [Suspect]
     Route: 042
  3. FERRICON [Suspect]
     Indication: IRON DEFICIENCY ANAEMIA
     Route: 042
  4. FERRICON [Suspect]
     Route: 042
  5. REMICADE [Suspect]
     Dosage: 11 INFUSIONS UNSPECIFIED DATES
     Route: 042
  6. REMICADE [Suspect]
     Route: 042
  7. REMICADE [Suspect]
     Route: 042
  8. REMICADE [Suspect]
     Route: 042
  9. REMICADE [Suspect]
     Route: 042
  10. REMICADE [Suspect]
     Route: 042
  11. PENTASA [Concomitant]
     Route: 048

REACTIONS (3)
  - DYSPNOEA [None]
  - ASTHMA [None]
  - INFUSION RELATED REACTION [None]
